FAERS Safety Report 7920119-8 (Version None)
Quarter: 2011Q4

REPORT INFORMATION
  Report Type: 
  Country: None (occurrence: None)
  Receive Date: 20111117
  Receipt Date: 20111111
  Transmission Date: 20120403
  Serious: Yes (Death, Hospitalization)
  Sender: FDA-Public Use
  Company Number: DE-ROCHE-792130

PATIENT
  Age: 75 Year
  Sex: Male
  Weight: 62 kg

DRUGS (7)
  1. MABTHERA [Suspect]
     Route: 042
  2. BENDAMUSTINE [Suspect]
     Indication: CHRONIC LYMPHOCYTIC LEUKAEMIA
     Dosage: FORM: INFUSION
     Route: 042
  3. MABTHERA [Suspect]
     Indication: CHRONIC LYMPHOCYTIC LEUKAEMIA
     Dosage: DISCONTINUED. DATE OF LAST DOSE PRIOR TO SAE:12 MAY 2011. FORM: INFUSION
     Route: 042
     Dates: start: 20110214, end: 20110627
  4. FLUDARABINE PHOSPHATE [Suspect]
     Route: 042
  5. CYCLOPHOSPHAMIDE [Suspect]
     Indication: CHRONIC LYMPHOCYTIC LEUKAEMIA
     Dosage: DISCONTINUED. DATE OF LAST PRIOR TO SAE:12 MAY 2011. FORM: INFUSION
     Route: 042
     Dates: start: 20110215, end: 20110627
  6. CYCLOPHOSPHAMIDE [Suspect]
     Route: 042
  7. FLUDARABINE PHOSPHATE [Suspect]
     Indication: CHRONIC LYMPHOCYTIC LEUKAEMIA
     Dosage: DISCONTINUED. DATE OF LAST DOSE PRIOR TO SAE:12 MAY 2011
     Route: 042
     Dates: start: 20110215, end: 20110627

REACTIONS (2)
  - SEPSIS [None]
  - PYREXIA [None]
